FAERS Safety Report 25332130 (Version 1)
Quarter: 2025Q2

REPORT INFORMATION
  Report Type: Spontaneous
  Country: FR (occurrence: FR)
  Receive Date: 20250519
  Receipt Date: 20250519
  Transmission Date: 20250716
  Serious: Yes (Hospitalization)
  Sender: SANDOZ
  Company Number: None

PATIENT
  Age: 47 Year
  Sex: Female
  Weight: 53.5 kg

DRUGS (3)
  1. CODEINE [Suspect]
     Active Substance: CODEINE
     Indication: Poisoning deliberate
     Dosage: UNK, QD
     Route: 065
     Dates: start: 20250322, end: 20250322
  2. ACETAMINOPHEN [Suspect]
     Active Substance: ACETAMINOPHEN
     Indication: Poisoning deliberate
     Dosage: 48 G, QD
     Route: 065
     Dates: start: 20250322, end: 20250322
  3. IBUPROFEN [Suspect]
     Active Substance: IBUPROFEN
     Indication: Poisoning deliberate
     Dosage: 8 G, QD
     Route: 065
     Dates: start: 20250322, end: 20250322

REACTIONS (3)
  - Poisoning deliberate [Recovered/Resolved]
  - Prothrombin time ratio decreased [Recovered/Resolved]
  - Vomiting [Recovered/Resolved]

NARRATIVE: CASE EVENT DATE: 20250322
